FAERS Safety Report 4612681-8 (Version None)
Quarter: 2005Q1

REPORT INFORMATION
  Report Type: 
  Country: None (occurrence: None)
  Receive Date: 20050316
  Receipt Date: 20050316
  Transmission Date: 20050727
  Serious: Yes (Hospitalization)
  Sender: FDA-Public Use
  Company Number: None

PATIENT
  Age: 89 Year
  Sex: Female
  Weight: 49 kg

DRUGS (5)
  1. DDAVP [Suspect]
     Indication: URINARY INCONTINENCE
     Dosage: 0.2MG    ORALLY
     Route: 048
     Dates: start: 20050307, end: 20050312
  2. CLOPIDOGREL BISULFATE [Concomitant]
  3. LOSARTIN [Concomitant]
  4. METOPROLOL [Concomitant]
  5. PANTOPRAZOLE SODIUM [Concomitant]

REACTIONS (3)
  - ASTHENIA [None]
  - HYPONATRAEMIA [None]
  - URINE OUTPUT DECREASED [None]
